FAERS Safety Report 13854573 (Version 1)
Quarter: 2017Q3

REPORT INFORMATION
  Report Type: Spontaneous
  Country: IL (occurrence: IL)
  Receive Date: 20170809
  Receipt Date: 20170809
  Transmission Date: 20171127
  Serious: Yes (Hospitalization)
  Sender: FDA-Public Use
  Company Number: IL-IMPAX LABORATORIES, INC-2017-IPXL-02327

PATIENT
  Age: 91 Year
  Sex: Male

DRUGS (2)
  1. MINOCYCLINE HYDROCHLORIDE. [Suspect]
     Active Substance: MINOCYCLINE HYDROCHLORIDE
     Indication: PEMPHIGOID
     Dosage: 200 MG, DAILY
     Route: 065
  2. MINOCYCLINE HYDROCHLORIDE. [Suspect]
     Active Substance: MINOCYCLINE HYDROCHLORIDE
     Indication: PRODUCT USE IN UNAPPROVED INDICATION

REACTIONS (3)
  - Chylothorax [Recovered/Resolved]
  - Lupus-like syndrome [Recovering/Resolving]
  - Product use in unapproved indication [Unknown]
